FAERS Safety Report 5677663-6 (Version None)
Quarter: 2008Q1

REPORT INFORMATION
  Report Type: 
  Country: None (occurrence: None)
  Receive Date: 20080324
  Receipt Date: 20071012
  Transmission Date: 20080703
  Serious: No
  Sender: FDA-Public Use
  Company Number: US-ABBOTT-07P-163-0420991-00

PATIENT
  Age: 7 Year
  Sex: Male
  Weight: 16 kg

DRUGS (3)
  1. VALPROIC ACID SYRUP GENERIC [Suspect]
     Indication: EPILEPSY
     Route: 048
     Dates: start: 20071008
  2. PHENYTOIN [Concomitant]
     Indication: EPILEPSY
  3. ANTI-HYPERTENSIVE MEDICATION [Concomitant]
     Indication: HYPERTENSION

REACTIONS (4)
  - CONSTIPATION [None]
  - HYPERTENSION [None]
  - HYPOTENSION [None]
  - OXYGEN SATURATION DECREASED [None]
